FAERS Safety Report 19175155 (Version 1)
Quarter: 2021Q2

REPORT INFORMATION
  Report Type: Report from Study
  Country: KR (occurrence: KR)
  Receive Date: 20210423
  Receipt Date: 20210423
  Transmission Date: 20210717
  Serious: Yes (Hospitalization)
  Sender: FDA-Public Use
  Company Number: KR-IPSEN BIOPHARMACEUTICALS, INC.-2019-17975

PATIENT
  Age: 67 Year
  Sex: Male
  Weight: 43.8 kg

DRUGS (13)
  1. ONIVYDE [Suspect]
     Active Substance: IRINOTECAN HYDROCHLORIDE
     Dosage: 75 MG
     Route: 042
     Dates: start: 20191017, end: 20191017
  2. FLUOROURACIL. [Suspect]
     Active Substance: FLUOROURACIL
     Dosage: 3440 MG, EVERY 2 WEEKS
     Route: 042
     Dates: start: 20190822, end: 20190824
  3. METFORMIN HYDROCHLORIDE. [Concomitant]
     Active Substance: METFORMIN HYDROCHLORIDE
     Indication: TYPE 2 DIABETES MELLITUS
     Dosage: 750 MG
     Route: 048
     Dates: start: 201802
  4. FLUOROURACIL. [Suspect]
     Active Substance: FLUOROURACIL
     Indication: PANCREATIC CARCINOMA
     Dosage: 3440 MG, EVERY 2 WEEKS
     Route: 042
     Dates: start: 20190802, end: 20190804
  5. FLUOROURACIL. [Suspect]
     Active Substance: FLUOROURACIL
     Dosage: 3000 MG, EVERY 2 WEEKS
     Route: 042
     Dates: start: 20191017, end: 20191019
  6. LEUCOVORIN. [Suspect]
     Active Substance: LEUCOVORIN
     Indication: PANCREATIC CARCINOMA
     Dosage: 390 MG, EVERY 2 WEEKS
     Route: 042
     Dates: start: 20190802, end: 20190802
  7. LEUCOVORIN. [Suspect]
     Active Substance: LEUCOVORIN
     Dosage: 390 MG, EVERY 2 WEEKS
     Route: 042
     Dates: start: 20190922, end: 20190922
  8. ONIVYDE [Suspect]
     Active Substance: IRINOTECAN HYDROCHLORIDE
     Indication: PANCREATIC CARCINOMA
     Dosage: 103 MG
     Route: 042
     Dates: start: 20190802, end: 20190802
  9. FLUOROURACIL. [Suspect]
     Active Substance: FLUOROURACIL
     Dosage: 2860 MG, EVERY 2 WEEKS
     Route: 042
     Dates: start: 20190922, end: 20190924
  10. ONIVYDE [Suspect]
     Active Substance: IRINOTECAN HYDROCHLORIDE
     Dosage: 100 MG
     Route: 042
     Dates: start: 20190822, end: 20190822
  11. ONIVYDE [Suspect]
     Active Substance: IRINOTECAN HYDROCHLORIDE
     Dosage: 71 MG
     Route: 042
     Dates: start: 20190922, end: 20190922
  12. LEUCOVORIN. [Suspect]
     Active Substance: LEUCOVORIN
     Dosage: 390 MG, EVERY 2 WEEKS
     Route: 042
     Dates: start: 20190822, end: 20190822
  13. LEUCOVORIN. [Suspect]
     Active Substance: LEUCOVORIN
     Dosage: 300 MG, EVERY 2 WEEKS
     Route: 042
     Dates: start: 20191017

REACTIONS (2)
  - Pneumonia [Recovered/Resolved]
  - Gastroenteritis [Recovered/Resolved]

NARRATIVE: CASE EVENT DATE: 20190909
